FAERS Safety Report 9893576 (Version 2)
Quarter: 2014Q1

REPORT INFORMATION
  Report Type: Spontaneous
  Country: US (occurrence: US)
  Receive Date: 20140213
  Receipt Date: 20140314
  Transmission Date: 20141002
  Serious: Yes (Other)
  Sender: FDA-Public Use
  Company Number: US-ASTRAZENECA-2014SE08631

PATIENT
  Age: 56 Year
  Sex: Female
  Weight: 54.4 kg

DRUGS (5)
  1. SYMBICORT [Suspect]
     Indication: CHRONIC OBSTRUCTIVE PULMONARY DISEASE
     Dosage: 160/4.5 MCG 2 PUFFS TWICE A DAY
     Route: 055
  2. SYMBICORT [Suspect]
     Indication: CHRONIC OBSTRUCTIVE PULMONARY DISEASE
     Dosage: TOOK A LITTLE BIT LESS SYBICORT THAN PRESCRIBED, UNKNOWN FREQUENCY
     Route: 055
  3. NEBULIZER TREATMENTS [Concomitant]
     Indication: BRONCHITIS
  4. ALBUTEROL SULFATE [Concomitant]
     Indication: BRONCHITIS
     Dosage: 2.5 MG/3 ML ONE VIAL UP TO 4 TIMES PER DAY
  5. IPRATROPIUM BROMIDE [Concomitant]
     Indication: BRONCHITIS
     Dosage: 0.5 MG/2.5 ML FOUR TIMES PER DAY

REACTIONS (4)
  - Bronchitis [Unknown]
  - Memory impairment [Unknown]
  - Circumstance or information capable of leading to medication error [Unknown]
  - Intentional drug misuse [Not Recovered/Not Resolved]
